FAERS Safety Report 25435905 (Version 7)
Quarter: 2025Q3

REPORT INFORMATION
  Report Type: Spontaneous
  Country: US (occurrence: US)
  Receive Date: 20250613
  Receipt Date: 20250822
  Transmission Date: 20251020
  Serious: Yes (Death, Life-Threatening, Hospitalization, Disabling, Other)
  Sender: GILEAD
  Company Number: US-GILEAD-2025-0716958

PATIENT
  Age: 59 Year
  Sex: Male

DRUGS (24)
  1. YESCARTA [Suspect]
     Active Substance: AXICABTAGENE CILOLEUCEL
     Indication: Diffuse large B-cell lymphoma
     Route: 065
     Dates: start: 20250519, end: 20250519
  2. HYDROCORTISONE [Concomitant]
     Active Substance: HYDROCORTISONE
     Route: 042
     Dates: start: 20250606
  3. HYDROCORTISONE [Concomitant]
     Active Substance: HYDROCORTISONE
     Route: 042
     Dates: start: 20250620
  4. HYDROCORTISONE [Concomitant]
     Active Substance: HYDROCORTISONE
     Route: 042
     Dates: start: 20250622
  5. HYDROCORTISONE [Concomitant]
     Active Substance: HYDROCORTISONE
     Dosage: 25 MG, BID
     Route: 042
  6. MIDODRINE [Concomitant]
     Active Substance: MIDODRINE
     Dosage: 20 MG, Q84HR
     Route: 065
     Dates: start: 20250628
  7. ZOVIRAX [Concomitant]
     Active Substance: ACYCLOVIR
     Dosage: 200 MG, QD
     Route: 042
  8. ATOVAQUONE [Concomitant]
     Active Substance: ATOVAQUONE
     Dosage: 1500 MG, QD
     Route: 065
  9. B COMPLEX 50 [Concomitant]
     Dosage: 1 DOSAGE FORM, QD
     Route: 065
  10. CHOLECALCIFEROL [Concomitant]
     Active Substance: CHOLECALCIFEROL
     Dosage: 400 DOSAGE FORM, QD
     Route: 065
  11. CHOLESTYRAMINE [Concomitant]
     Active Substance: CHOLESTYRAMINE
     Dosage: 4 G, BID
     Route: 065
  12. DICYCLOMINE [Concomitant]
     Active Substance: DICYCLOMINE HYDROCHLORIDE
     Dosage: 10 MG, Q6H
  13. DOCUSATE [Concomitant]
     Active Substance: DOCUSATE
     Dosage: 50 MG, BID
     Route: 065
  14. DROXIDOPA [Concomitant]
     Active Substance: DROXIDOPA
     Dosage: 600 MG, Q8H
     Route: 065
  15. HEPARIN SODIUM [Concomitant]
     Active Substance: HEPARIN SODIUM
     Route: 037
  16. INSULIN BEEF [Concomitant]
     Active Substance: INSULIN BEEF
     Dosage: UNK, Q6H
     Route: 058
  17. LIPASE [Concomitant]
     Active Substance: LIPASE
     Dosage: 2 DOSAGE FORM, BID
     Route: 065
  18. PANTOPRAZOLE [Concomitant]
     Active Substance: PANTOPRAZOLE
     Dosage: 40 MG, BID
     Route: 042
  19. ZOSYN [Concomitant]
     Active Substance: PIPERACILLIN SODIUM\TAZOBACTAM SODIUM
     Dosage: 3.375 G, Q84HR
     Route: 042
  20. POLYETHYLENE GLYCOLS [Concomitant]
     Active Substance: POLYETHYLENE GLYCOLS
     Dosage: 17 G, BID
     Route: 065
  21. PREGABALIN [Concomitant]
     Active Substance: PREGABALIN
     Dosage: 50 MG, BID
     Route: 065
  22. QUETIAPINE [Concomitant]
     Active Substance: QUETIAPINE
     Route: 065
  23. TACROLIMUS [Concomitant]
     Active Substance: TACROLIMUS
     Dosage: 0.5 MG, BID
     Route: 060
  24. VANCOMYCIN [Concomitant]
     Active Substance: VANCOMYCIN
     Dosage: 1 G, QD
     Route: 042

REACTIONS (10)
  - Intestinal perforation [Fatal]
  - Pancreatitis necrotising [Fatal]
  - Immune effector cell-associated neurotoxicity syndrome [Recovered/Resolved]
  - Encephalopathy [Recovering/Resolving]
  - Cardiac arrest [Recovered/Resolved]
  - Acute kidney injury [Unknown]
  - Leukopenia [Unknown]
  - Thrombocytopenia [Recovering/Resolving]
  - Status epilepticus [Unknown]
  - Shock [Unknown]

NARRATIVE: CASE EVENT DATE: 20250522
